FAERS Safety Report 15113498 (Version 2)
Quarter: 2018Q3

REPORT INFORMATION
  Report Type: Spontaneous
  Country: JP (occurrence: JP)
  Receive Date: 20180706
  Receipt Date: 20180801
  Transmission Date: 20181010
  Serious: Yes (Other)
  Sender: FDA-Public Use
  Company Number: JP-BRISTOL-MYERS SQUIBB COMPANY-BMS-2018-061288

PATIENT
  Sex: Male
  Weight: 61 kg

DRUGS (3)
  1. KENACORT?A [Suspect]
     Active Substance: TRIAMCINOLONE
     Indication: ROTATOR CUFF SYNDROME
     Dosage: 20 MG, QMO
     Route: 058
     Dates: start: 20180326, end: 20180514
  2. LANTUS XR [Concomitant]
     Active Substance: INSULIN GLARGINE
     Indication: TYPE 1 DIABETES MELLITUS
     Dosage: 14 UNIT, QD
     Route: 058
     Dates: start: 20100723
  3. KENACORT?A [Suspect]
     Active Substance: TRIAMCINOLONE
     Indication: ALOPECIA AREATA
     Route: 065

REACTIONS (2)
  - Hyperglycaemia [Recovering/Resolving]
  - Product use issue [Unknown]
